FAERS Safety Report 24573420 (Version 3)
Quarter: 2025Q2

REPORT INFORMATION
  Report Type: Report from Study
  Country: US (occurrence: US)
  Receive Date: 20241102
  Receipt Date: 20250415
  Transmission Date: 20250717
  Serious: No
  Sender: NOVARTIS
  Company Number: US-002147023-NVSC2024US212208

PATIENT
  Sex: Male
  Weight: 79 kg

DRUGS (1)
  1. FABHALTA [Suspect]
     Active Substance: IPTACOPAN HYDROCHLORIDE
     Indication: Paroxysmal nocturnal haemoglobinuria
     Dosage: 200 MG, BID (2X DAILY)
     Route: 048

REACTIONS (2)
  - Diarrhoea [Recovering/Resolving]
  - Cough [Unknown]
